FAERS Safety Report 5554098-8 (Version None)
Quarter: 2007Q4

REPORT INFORMATION
  Report Type: 
  Country: None (occurrence: None)
  Receive Date: 20071213
  Receipt Date: 20071205
  Transmission Date: 20080405
  Serious: Yes (Other)
  Sender: FDA-Public Use
  Company Number: US-JNJFOC-20071201813

PATIENT
  Sex: Female
  Weight: 83.92 kg

DRUGS (4)
  1. REMICADE [Suspect]
     Route: 042
  2. REMICADE [Suspect]
     Indication: RHEUMATOID ARTHRITIS
     Dosage: 3 VIALS
     Route: 042
  3. PREDNISONE [Concomitant]
     Dosage: 6 MOS
  4. METHOTREXATE [Concomitant]
     Dosage: 6 MOS

REACTIONS (1)
  - SYSTEMIC LUPUS ERYTHEMATOSUS [None]
